FAERS Safety Report 6342616-1 (Version None)
Quarter: 2009Q3

REPORT INFORMATION
  Report Type: 
  Country: None (occurrence: None)
  Receive Date: 20090908
  Receipt Date: 20060222
  Transmission Date: 20100115
  Serious: No
  Sender: FDA-Public Use
  Company Number: JP-ROCHE-440058

PATIENT
  Sex: Female

DRUGS (1)
  1. TAMIFLU [Suspect]
     Indication: DRUG USE FOR UNKNOWN INDICATION
     Route: 048
     Dates: start: 20060122, end: 20060125

REACTIONS (2)
  - DRUG EXPOSURE DURING PREGNANCY [None]
  - PREGNANCY [None]
